FAERS Safety Report 12054377 (Version 1)
Quarter: 2016Q1

REPORT INFORMATION
  Report Type: Report from Study
  Country: US (occurrence: US)
  Receive Date: 20160209
  Receipt Date: 20160209
  Transmission Date: 20160526
  Serious: Yes (Death, Life-Threatening, Hospitalization)
  Sender: FDA-Public Use
  Company Number: GXBR2016US000639

PATIENT
  Age: 83 Year
  Sex: Male
  Weight: 90.79 kg

DRUGS (10)
  1. NAFCILLIN [Suspect]
     Active Substance: NAFCILLIN\NAFCILLIN SODIUM
     Indication: BACTERIAL INFECTION
     Dosage: 2 G, Q4H
     Route: 042
     Dates: start: 20151213
  2. ANCEF [Suspect]
     Active Substance: CEFAZOLIN SODIUM
     Indication: BACTERIAL INFECTION
     Dosage: 2 G, Q8H
     Route: 042
     Dates: start: 20151209, end: 20151213
  3. CUBICIN [Suspect]
     Active Substance: DAPTOMYCIN
     Indication: BACTERIAL INFECTION
     Dosage: 600 MG, QD
     Route: 042
     Dates: start: 20151208, end: 20151211
  4. XARELTO [Concomitant]
     Active Substance: RIVAROXABAN
     Indication: PRODUCT USED FOR UNKNOWN INDICATION
     Dosage: UNK DF, UNK
     Route: 065
     Dates: end: 20151212
  5. TAFAMIDIS MEGLUMINE [Suspect]
     Active Substance: TAFAMIDIS MEGLUMINE
     Indication: CARDIOMYOPATHY
     Dosage: UNK DF, UNK
     Route: 065
     Dates: start: 20141229, end: 20151212
  6. COZAAR [Concomitant]
     Active Substance: LOSARTAN POTASSIUM
     Indication: PRODUCT USED FOR UNKNOWN INDICATION
     Dosage: UNK DF, UNK
     Route: 065
     Dates: end: 20151212
  7. HYDROCHLOROTHIAZIDE. [Concomitant]
     Active Substance: HYDROCHLOROTHIAZIDE
     Indication: PRODUCT USED FOR UNKNOWN INDICATION
     Dosage: UNK DF, UNK
     Route: 065
     Dates: end: 20151212
  8. LIPITOR [Concomitant]
     Active Substance: ATORVASTATIN CALCIUM
     Indication: PRODUCT USED FOR UNKNOWN INDICATION
     Dosage: UNK DF, UNK
     Route: 065
  9. DEMADEX [Concomitant]
     Active Substance: TORSEMIDE
     Indication: PRODUCT USED FOR UNKNOWN INDICATION
     Dosage: UNK DF, UNK
     Route: 065
     Dates: end: 20151212
  10. MAXIPIME [Suspect]
     Active Substance: CEFEPIME HYDROCHLORIDE
     Indication: BACTERIAL INFECTION
     Dosage: 1000 MG, Q12H
     Route: 042
     Dates: start: 20151209, end: 20151211

REACTIONS (1)
  - Clostridium difficile colitis [Fatal]

NARRATIVE: CASE EVENT DATE: 20151213
